FAERS Safety Report 12595477 (Version 2)
Quarter: 2016Q3

REPORT INFORMATION
  Report Type: Report from Study
  Country: US (occurrence: US)
  Receive Date: 20160727
  Receipt Date: 20160914
  Transmission Date: 20161109
  Serious: Yes (Hospitalization, Other)
  Sender: FDA-Public Use
  Company Number: US-BRISTOL-MYERS SQUIBB COMPANY-BMS-2016-060274

PATIENT
  Age: 57 Year
  Sex: Female
  Weight: 56.7 kg

DRUGS (1)
  1. NIVOLUMAB [Suspect]
     Active Substance: NIVOLUMAB
     Indication: SQUAMOUS CELL CARCINOMA OF LUNG
     Dosage: 3 MG/KG, UNK
     Route: 042
     Dates: start: 20160419, end: 20160628

REACTIONS (7)
  - Pleural effusion [Recovering/Resolving]
  - Pyrexia [Recovering/Resolving]
  - Hypotension [Recovering/Resolving]
  - Pericarditis [Recovering/Resolving]
  - Musculoskeletal chest pain [Recovering/Resolving]
  - Pericardial effusion [Recovering/Resolving]
  - Fatigue [Recovering/Resolving]

NARRATIVE: CASE EVENT DATE: 20150723
